FAERS Safety Report 16505453 (Version 1)
Quarter: 2019Q3

REPORT INFORMATION
  Report Type: Spontaneous
  Country: US (occurrence: US)
  Receive Date: 20190701
  Receipt Date: 20190701
  Transmission Date: 20191004
  Serious: No
  Sender: FDA-Public Use
  Company Number: US-SA-2019SA174717

PATIENT
  Sex: Male

DRUGS (14)
  1. KLONOPIN [Concomitant]
     Active Substance: CLONAZEPAM
     Dosage: UNK UNK, UNK
     Route: 065
  2. POTASSIUM CHLORIDE. [Concomitant]
     Active Substance: POTASSIUM CHLORIDE
     Dosage: 10 MG, UNK
     Route: 065
     Dates: start: 2016
  3. TAMSULOSIN HYDROCHLORIDE. [Suspect]
     Active Substance: TAMSULOSIN HYDROCHLORIDE
     Indication: PRODUCT USED FOR UNKNOWN INDICATION
     Dosage: UNK UNK, UNK
     Route: 065
  4. RANITIDINE. [Concomitant]
     Active Substance: RANITIDINE
     Dosage: 150 MG, UNK
  5. LOSARTAN. [Concomitant]
     Active Substance: LOSARTAN
     Dosage: 50 MG, UNK
     Route: 065
     Dates: start: 2016
  6. ATENOLOL. [Concomitant]
     Active Substance: ATENOLOL
     Dosage: 25 MG, UNK
  7. PRAVASTATIN. [Concomitant]
     Active Substance: PRAVASTATIN
     Dosage: UNK UNK, UNK
     Route: 065
     Dates: start: 2016
  8. OMEPRAZOLE. [Concomitant]
     Active Substance: OMEPRAZOLE
     Dosage: 40 MG, UNK
     Route: 065
  9. BUMETANIDE. [Concomitant]
     Active Substance: BUMETANIDE
     Dosage: 1 MG, UNK
     Route: 065
     Dates: start: 2016
  10. ASPIRIN [ACETYLSALICYLIC ACID] [Concomitant]
     Active Substance: ASPIRIN
     Dosage: 325 MG, UNK
     Route: 065
     Dates: start: 2016
  11. BUPROFEN [Concomitant]
     Active Substance: IBUPROFEN
     Dosage: 2 DF, UNK
     Route: 065
  12. TRAZODONE [Concomitant]
     Active Substance: TRAZODONE HYDROCHLORIDE
     Dosage: UNK UNK, UNK
     Route: 065
  13. CLARITIN [GLICLAZIDE] [Concomitant]
     Active Substance: GLICLAZIDE
     Dosage: UNK UNK, UNK
     Route: 065
     Dates: start: 2016
  14. REMERON [Concomitant]
     Active Substance: MIRTAZAPINE
     Dosage: 45 MG, UNK
     Route: 065

REACTIONS (1)
  - Gait disturbance [Unknown]
